FAERS Safety Report 16794105 (Version 1)
Quarter: 2019Q3

REPORT INFORMATION
  Report Type: Spontaneous
  Country: US (occurrence: US)
  Receive Date: 20190911
  Receipt Date: 20190911
  Transmission Date: 20191005
  Serious: No
  Sender: FDA-Public Use
  Company Number: US-ROCHE-2246423

PATIENT
  Age: 62 Year
  Sex: Female
  Weight: 53.12 kg

DRUGS (2)
  1. GAMMA KNIFE RADIATION [Concomitant]
  2. ALECENSA [Suspect]
     Active Substance: ALECTINIB HYDROCHLORIDE
     Indication: LUNG NEOPLASM MALIGNANT
     Dosage: 4 CAPSULES IN THE MORNING AND  4 CAPSULES IN EVENING
     Route: 048
     Dates: start: 201808

REACTIONS (1)
  - Alopecia [Not Recovered/Not Resolved]

NARRATIVE: CASE EVENT DATE: 201811
